FAERS Safety Report 4921334-8 (Version None)
Quarter: 2006Q1

REPORT INFORMATION
  Report Type: 
  Country: None (occurrence: None)
  Receive Date: 20060224
  Receipt Date: 20060216
  Transmission Date: 20060701
  Serious: Yes (Hospitalization)
  Sender: FDA-Public Use
  Company Number: DE-JNJFOC-20060204294

PATIENT
  Age: 44 Year
  Sex: Female
  Weight: 62 kg

DRUGS (1)
  1. INFLIXIMAB [Suspect]
     Dosage: LAST INFUSION WAS ON 22-DEC-2005)
     Route: 042

REACTIONS (3)
  - GASTRITIS EROSIVE [None]
  - HELICOBACTER INFECTION [None]
  - OESOPHAGITIS [None]
